FAERS Safety Report 10250478 (Version 1)
Quarter: 2014Q2

REPORT INFORMATION
  Report Type: Spontaneous
  Country: US (occurrence: None)
  Receive Date: 20140619
  Receipt Date: 20140619
  Transmission Date: 20141212
  Serious: Yes (Other)
  Sender: FDA-Public Use
  Company Number: None

PATIENT
  Sex: Male

DRUGS (1)
  1. ATORVASTATIN UNKNOWN MANUFACTURER [Suspect]
     Indication: HYPERLIPIDAEMIA
     Route: 048
     Dates: start: 2013

REACTIONS (1)
  - Muscle spasms [None]
